FAERS Safety Report 8874946 (Version 2)
Quarter: 2013Q1

REPORT INFORMATION
  Report Type: Spontaneous
  Country: US (occurrence: US)
  Receive Date: 20121030
  Receipt Date: 20130307
  Transmission Date: 20140127
  Serious: Yes (Hospitalization, Other)
  Sender: FDA-Public Use
  Company Number: US-GILEAD-2012-0063693

PATIENT
  Sex: Female

DRUGS (2)
  1. LETAIRIS [Suspect]
     Indication: SYSTEMIC SCLEROSIS
     Dosage: 10 MG, QD
     Route: 048
     Dates: start: 20120904
  2. LETAIRIS [Suspect]
     Dosage: 5 MG, QD
     Route: 048
     Dates: start: 20120831

REACTIONS (3)
  - Foot operation [Not Recovered/Not Resolved]
  - Toe amputation [Unknown]
  - Wound [Unknown]
